FAERS Safety Report 8067108-3 (Version None)
Quarter: 2012Q1

REPORT INFORMATION
  Report Type: 
  Country: None (occurrence: None)
  Receive Date: 20120124
  Receipt Date: 20120109
  Transmission Date: 20120608
  Serious: Yes (Other)
  Sender: FDA-Public Use
  Company Number: IN-WATSON-2012-00760

PATIENT
  Age: 19 Year
  Sex: Male

DRUGS (1)
  1. TOPIRAMATE [Suspect]
     Indication: MIGRAINE
     Dosage: 25 MG, BID
     Route: 065

REACTIONS (5)
  - CONJUNCTIVAL HYPERAEMIA [None]
  - ANGLE CLOSURE GLAUCOMA [None]
  - CORNEAL OEDEMA [None]
  - MYOPIA [None]
  - FLAT ANTERIOR CHAMBER OF EYE [None]
